FAERS Safety Report 14521585 (Version 1)
Quarter: 2018Q1

REPORT INFORMATION
  Report Type: Report from Study
  Country: US (occurrence: US)
  Receive Date: 20180212
  Receipt Date: 20180212
  Transmission Date: 20180509
  Serious: Yes (Other)
  Sender: FDA-Public Use
  Company Number: US-MYLANLABS-2018M1008931

PATIENT
  Age: 56 Year
  Sex: Male

DRUGS (4)
  1. RIBAVIRIN. [Concomitant]
     Active Substance: RIBAVIRIN
     Indication: PAPILLOMA VIRAL INFECTION
     Dosage: ON DAYS 1-21 OF EACH 21 DAY CYCLE
     Route: 048
  2. AFATINIB [Concomitant]
     Active Substance: AFATINIB
     Indication: TONSIL CANCER
     Dosage: 30 MG/DAY; ON DAYS 1-21 OF EACH 21 DAY CYCLE
     Route: 048
  3. CARBOPLATIN. [Concomitant]
     Active Substance: CARBOPLATIN
     Indication: TONSIL CANCER
     Dosage: AUC 1.5 WITH A MAXIMUM FLAT DOSE 225MG ON DAYS 1 AND 8 OF EACH 21 DAY CYCLE
     Route: 042
  4. PACLITAXEL. [Suspect]
     Active Substance: PACLITAXEL
     Indication: TONSIL CANCER
     Dosage: 80 MG/M2, ON DAYS 1 AND 8 OF EACH 21 DAY CYCLE
     Route: 042

REACTIONS (4)
  - Chest pain [Unknown]
  - Flushing [Unknown]
  - Hypotension [Unknown]
  - Hypoxia [Unknown]
